FAERS Safety Report 6418609-2 (Version None)
Quarter: 2009Q4

REPORT INFORMATION
  Report Type: 
  Country: None (occurrence: None)
  Receive Date: 20091028
  Receipt Date: 20091022
  Transmission Date: 20100525
  Serious: Yes (Other)
  Sender: FDA-Public Use
  Company Number: PHHY2009TR46092

PATIENT

DRUGS (1)
  1. TRILEPTAL [Suspect]
     Dosage: TOOK 2 DOSES (ONE DOSE IN THE EVENING AND ONE DOSE IN THE MORNING)

REACTIONS (1)
  - INCORRECT DOSE ADMINISTERED [None]
